FAERS Safety Report 15375415 (Version 12)
Quarter: 2019Q4

REPORT INFORMATION
  Report Type: Report from Study
  Country: NL (occurrence: NL)
  Receive Date: 20180912
  Receipt Date: 20191227
  Transmission Date: 20200122
  Serious: Yes (Other)
  Sender: FDA-Public Use
  Company Number: NL-INCYTE CORPORATION-2018IN009045

PATIENT

DRUGS (10)
  1. JAKAVI [Suspect]
     Active Substance: RUXOLITINIB
     Indication: POLYCYTHAEMIA VERA
     Dosage: 20 OT, UNK
     Route: 048
     Dates: start: 20171221, end: 20180315
  2. JAKAVI [Suspect]
     Active Substance: RUXOLITINIB
     Dosage: 30 OT, UNK
     Route: 048
     Dates: start: 20180316, end: 20180518
  3. JAKAVI [Suspect]
     Active Substance: RUXOLITINIB
     Dosage: 40 OT, UNK
     Route: 065
     Dates: start: 20180713
  4. BUDESONIDE. [Concomitant]
     Active Substance: BUDESONIDE
     Indication: BRONCHITIS
  5. RIVAROXABAN [Concomitant]
     Active Substance: RIVAROXABAN
     Indication: DEEP VEIN THROMBOSIS
     Dosage: 10 OT, UNK
     Route: 065
     Dates: start: 20180319
  6. BUDESONIDE. [Concomitant]
     Active Substance: BUDESONIDE
     Indication: CHRONIC OBSTRUCTIVE PULMONARY DISEASE
     Dosage: 1 DF (6 MCG/DOSE), QD
     Route: 065
     Dates: start: 20170314
  7. METOPROLOL. [Concomitant]
     Active Substance: METOPROLOL
     Indication: HYPERTENSION
     Dosage: 100 OT, UNK
     Route: 065
     Dates: start: 20141117
  8. JAKAVI [Suspect]
     Active Substance: RUXOLITINIB
     Dosage: 30 OT, UNK
     Route: 048
     Dates: start: 20180609, end: 20180712
  9. FLECAINIDE [Concomitant]
     Active Substance: FLECAINIDE
     Indication: WOLFF-PARKINSON-WHITE SYNDROME
     Dosage: 100 OT, UNK
     Route: 065
     Dates: start: 20150209
  10. ACENOCOUMAROL [Concomitant]
     Active Substance: ACENOCOUMAROL
     Indication: DEEP VEIN THROMBOSIS
     Dosage: UNK
     Route: 065
     Dates: start: 20120514, end: 20180315

REACTIONS (16)
  - Angioedema [Recovered/Resolved]
  - Eyelid oedema [Recovering/Resolving]
  - Eye infection [Recovered/Resolved]
  - Headache [Recovered/Resolved]
  - Eye pain [Recovering/Resolving]
  - Fatigue [Not Recovered/Not Resolved]
  - Swelling of eyelid [Recovering/Resolving]
  - Hypertension [Recovered/Resolved]
  - Blood potassium increased [Recovered/Resolved]
  - Angioedema [Recovered/Resolved]
  - Vaginal haemorrhage [Recovered/Resolved]
  - Vision blurred [Recovering/Resolving]
  - Bronchitis [Recovered/Resolved]
  - Hypertension [Recovering/Resolving]
  - Cataract [Unknown]
  - Peau d^orange [Recovering/Resolving]

NARRATIVE: CASE EVENT DATE: 20180201
